FAERS Safety Report 9783653 (Version 2)
Quarter: 2014Q1

REPORT INFORMATION
  Report Type: Spontaneous
  Country: IT (occurrence: IT)
  Receive Date: 20131226
  Receipt Date: 20140113
  Transmission Date: 20141002
  Serious: Yes (Life-Threatening)
  Sender: FDA-Public Use
  Company Number: IT-BRACCO-003159

PATIENT
  Age: 44 Year
  Sex: Male

DRUGS (2)
  1. MULTIHANCE [Suspect]
     Indication: NUCLEAR MAGNETIC RESONANCE IMAGING
     Route: 042
     Dates: start: 20131219, end: 20131219
  2. AZATIOPRINA [Concomitant]

REACTIONS (3)
  - Loss of consciousness [Recovering/Resolving]
  - Respiratory depression [Recovering/Resolving]
  - Vomiting [Recovering/Resolving]
